FAERS Safety Report 14260856 (Version 1)
Quarter: 2017Q4

REPORT INFORMATION
  Report Type: Not Available
  Country: None (occurrence: US)
  Receive Date: 20171207
  Receipt Date: 20171207
  Transmission Date: 20180321
  Serious: No
  Sender: FDA-Public Use
  Company Number: US-AKORN-74224

PATIENT
  Sex: Female

DRUGS (1)
  1. LEVALBUTEROL HCL [Suspect]
     Active Substance: LEVALBUTEROL HYDROCHLORIDE

REACTIONS (1)
  - Peripheral swelling [Unknown]
